FAERS Safety Report 9536207 (Version 3)
Quarter: 2013Q4

REPORT INFORMATION
  Report Type: Spontaneous
  Country: US (occurrence: US)
  Receive Date: 20130919
  Receipt Date: 20131206
  Transmission Date: 20140711
  Serious: No
  Sender: FDA-Public Use
  Company Number: US-PFIZER INC-2013265636

PATIENT
  Age: 81 Year
  Sex: Female
  Weight: 77.1 kg

DRUGS (11)
  1. GLIPIZIDE [Suspect]
     Indication: DIABETES MELLITUS
     Dosage: 5 MG, UNK
  2. GLIPIZIDE [Suspect]
     Dosage: 10 MG, QD
     Route: 048
     Dates: start: 2011, end: 20130916
  3. XELJANZ [Suspect]
     Indication: RHEUMATOID ARTHRITIS
     Dosage: 5 MG, BID
     Route: 048
     Dates: start: 2013
  4. JANUVIA [Suspect]
     Indication: DIABETES MELLITUS
     Dosage: 100 MG, 1/2 QD
     Route: 048
     Dates: start: 2011
  5. COLESTIPOL [Concomitant]
     Indication: BLOOD CHOLESTEROL INCREASED
     Dosage: UNK
  6. THYROXINE [Concomitant]
     Indication: THYROID DISORDER
     Dosage: UNK
  7. DILTIAZEM [Concomitant]
     Indication: HYPERTENSION
     Dosage: UNK
  8. ESTRADIOL [Concomitant]
     Dosage: UNK
  9. PRILOSEC [Concomitant]
     Dosage: UNK
  10. ERGOCALCIFEROL [Concomitant]
     Dosage: UNK
  11. PLAQUENIL [Concomitant]
     Dosage: UNK

REACTIONS (4)
  - Blood glucose fluctuation [Unknown]
  - Hypoglycaemia [Recovered/Resolved]
  - Abdominal discomfort [Unknown]
  - Decreased appetite [Unknown]
